FAERS Safety Report 23712671 (Version 1)
Quarter: 2024Q2

REPORT INFORMATION
  Report Type: Report from Study
  Country: RU (occurrence: RU)
  Receive Date: 20240405
  Receipt Date: 20240405
  Transmission Date: 20240716
  Serious: Yes (Other)
  Sender: FDA-Public Use
  Company Number: RU-002147023-NVSC2024RU053852

PATIENT
  Age: 56 Year
  Sex: Female

DRUGS (1)
  1. INCLISIRAN [Suspect]
     Active Substance: INCLISIRAN
     Indication: Dyslipidaemia
     Dosage: 1 DOSAGE FORM
     Route: 058
     Dates: start: 20240222

REACTIONS (1)
  - Lipoprotein (a) decreased [Unknown]

NARRATIVE: CASE EVENT DATE: 20240222
